FAERS Safety Report 7449573-5 (Version None)
Quarter: 2011Q2

REPORT INFORMATION
  Report Type: 
  Country: None (occurrence: None)
  Receive Date: 20110502
  Receipt Date: 20110412
  Transmission Date: 20111010
  Serious: Yes (Other)
  Sender: FDA-Public Use
  Company Number: US-BAYER-2011-035348

PATIENT
  Age: 40 Year
  Sex: Female
  Weight: 117.91 kg

DRUGS (5)
  1. YAZ [Suspect]
     Indication: PREMENSTRUAL SYNDROME
  2. ASCORBIC ACID [Concomitant]
  3. YAZ [Suspect]
     Indication: ACNE
     Dosage: UNK
     Dates: start: 20070101, end: 20090101
  4. MOTRIN [Concomitant]
     Dosage: UNK
     Dates: start: 19820101, end: 20070101
  5. ADVIL LIQUI-GELS [Concomitant]
     Dosage: UNK
     Dates: start: 19820101, end: 20070101

REACTIONS (1)
  - DEEP VEIN THROMBOSIS [None]
